FAERS Safety Report 5667309-5 (Version None)
Quarter: 2008Q1

REPORT INFORMATION
  Report Type: 
  Country: None (occurrence: None)
  Receive Date: 20080315
  Receipt Date: 20080118
  Transmission Date: 20080703
  Serious: No
  Sender: FDA-Public Use
  Company Number: US-ABBOTT-08P-163-0434172-00

PATIENT
  Sex: Female
  Weight: 52.21 kg

DRUGS (3)
  1. HUMIRA [Suspect]
     Indication: ANKYLOSING SPONDYLITIS
     Route: 058
     Dates: start: 20071001, end: 20080118
  2. WELLBUTRIN XL [Concomitant]
     Indication: DRUG USE FOR UNKNOWN INDICATION
  3. PROCHLORPERAZINE EDISYLATE [Concomitant]
     Indication: DRUG USE FOR UNKNOWN INDICATION

REACTIONS (8)
  - EPISTAXIS [None]
  - FATIGUE [None]
  - HEADACHE [None]
  - HEART RATE IRREGULAR [None]
  - PALPITATIONS [None]
  - PYREXIA [None]
  - SINUSITIS [None]
  - STOMACH DISCOMFORT [None]
